FAERS Safety Report 23212948 (Version 3)
Quarter: 2024Q4

REPORT INFORMATION
  Report Type: Spontaneous
  Country: US (occurrence: US)
  Receive Date: 20231121
  Receipt Date: 20241204
  Transmission Date: 20250115
  Serious: Yes (Other)
  Sender: PFIZER
  Company Number: US-PFIZER INC-PV202300190414

PATIENT
  Age: 72 Year
  Sex: Female
  Weight: 80.4 kg

DRUGS (3)
  1. IBRANCE [Suspect]
     Active Substance: PALBOCICLIB
     Indication: Breast cancer metastatic
     Dosage: 100 MG, CYCLIC; (TAKE 1 TABLET PO (PER ORAL)EVERY DAY FOR 21 DAYS, FOLLOWED BY 7 DAYS OFF)
     Route: 048
  2. FEMARA [Suspect]
     Active Substance: LETROZOLE
     Dosage: UNK
  3. XGEVA [Concomitant]
     Active Substance: DENOSUMAB
     Dosage: UNK

REACTIONS (3)
  - Chronic kidney disease [Unknown]
  - Haemoglobin decreased [Unknown]
  - Weight increased [Recovered/Resolved]
